FAERS Safety Report 4617524-4 (Version None)
Quarter: 2005Q1

REPORT INFORMATION
  Report Type: 
  Country: None (occurrence: None)
  Receive Date: 20050324
  Receipt Date: 20050106
  Transmission Date: 20050727
  Serious: Yes (Life-Threatening, Hospitalization, Other)
  Sender: FDA-Public Use
  Company Number: GBWYE322207JAN05

PATIENT
  Sex: Male

DRUGS (4)
  1. ENBREL [Suspect]
     Indication: RHEUMATOID ARTHRITIS
     Dosage: UNKNOWN
  2. CELEBREX [Suspect]
     Route: 048
  3. MOBIC [Suspect]
     Route: 048
     Dates: end: 20050102
  4. PREDNISOLONE [Suspect]
     Route: 048

REACTIONS (5)
  - CORONARY ARTERY DISEASE [None]
  - MYOCARDIAL INFARCTION [None]
  - PULMONARY OEDEMA [None]
  - RESPIRATORY DISORDER [None]
  - SEPSIS [None]
